FAERS Safety Report 5377000-0 (Version None)
Quarter: 2007Q2

REPORT INFORMATION
  Report Type: 
  Country: None (occurrence: None)
  Receive Date: 20070628
  Receipt Date: 20070628
  Transmission Date: 20071010
  Serious: Yes (Hospitalization)
  Sender: FDA-Public Use
  Company Number: None

PATIENT
  Age: 86 Year
  Sex: Female
  Weight: 53.4 kg

DRUGS (2)
  1. DOXEPIN HCL [Suspect]
     Indication: PRURITUS
     Dosage: 150 MG Q8H PRN PO (DURATION: RECENTLY STARTED)
     Route: 048
  2. CELEXA [Suspect]
     Indication: DEPRESSION
     Dosage: 40 MG DAILY PO  (DURATION: RECENTLY STARTED)
     Route: 048

REACTIONS (1)
  - SEDATION [None]
